FAERS Safety Report 16304239 (Version 4)
Quarter: 2020Q1

REPORT INFORMATION
  Report Type: Spontaneous
  Country: FR (occurrence: FR)
  Receive Date: 20190513
  Receipt Date: 20200210
  Transmission Date: 20200409
  Serious: Yes (Death, Other)
  Sender: FDA-Public Use
  Company Number: FR-GLAXOSMITHKLINE-FR2019GSK083436

PATIENT

DRUGS (8)
  1. OXAZEPAM. [Suspect]
     Active Substance: OXAZEPAM
     Indication: PRODUCT USED FOR UNKNOWN INDICATION
     Dosage: UNK
     Route: 065
  2. NORDAZEPAM [Suspect]
     Active Substance: NORDAZEPAM
     Indication: PRODUCT USED FOR UNKNOWN INDICATION
     Dosage: UNK
     Route: 065
  3. NICOTINE. [Suspect]
     Active Substance: NICOTINE
     Indication: DRUG DEPENDENCE
     Dosage: 21 MG, UNK (21 MG, PATCHES)
     Route: 062
  4. LORMETAZEPAM [Suspect]
     Active Substance: LORMETAZEPAM
     Indication: PRODUCT USED FOR UNKNOWN INDICATION
     Dosage: UNK
     Route: 065
  5. CYAMEMAZINE [Suspect]
     Active Substance: CYAMEMAZINE
     Indication: PRODUCT USED FOR UNKNOWN INDICATION
     Dosage: UNK
     Route: 065
  6. BUPRENORPHINE HCL SUBLINGUAL TABLET [Suspect]
     Active Substance: BUPRENORPHINE HYDROCHLORIDE
     Indication: PRODUCT USED FOR UNKNOWN INDICATION
     Dosage: UNK
     Route: 060
  7. NICOTINE. [Suspect]
     Active Substance: NICOTINE
     Dosage: UNK, 1.5 MG CAPSULES, 5 BLISTERS; UNKNOWN
     Route: 065
  8. NICOTINE. [Suspect]
     Active Substance: NICOTINE
     Dosage: AS NECESSARY, TRANSDERMAL PATCHES, 2 DOSAGE FORM
     Route: 062

REACTIONS (2)
  - Tobacco poisoning [Fatal]
  - Toxicity to various agents [Unknown]

NARRATIVE: CASE EVENT DATE: 2017
